FAERS Safety Report 15576180 (Version 1)
Quarter: 2018Q4

REPORT INFORMATION
  Report Type: Report from Study
  Country: JP (occurrence: JP)
  Receive Date: 20181101
  Receipt Date: 20181101
  Transmission Date: 20190205
  Serious: Yes (Other)
  Sender: FDA-Public Use
  Company Number: JP-ASTRAZENECA-2018SF43242

PATIENT
  Age: 86 Year
  Sex: Male

DRUGS (9)
  1. GLIMICRON [Concomitant]
     Active Substance: GLICLAZIDE
     Dates: end: 20150323
  2. BUFFERIN [Concomitant]
     Active Substance: ASPIRIN
  3. CONIEL [Concomitant]
     Active Substance: BENIDIPINE HYDROCHLORIDE
     Dosage: 4 MG
  4. ITOROL [Concomitant]
     Active Substance: ISOSORBIDE MONONITRATE
  5. AMARYL [Concomitant]
     Active Substance: GLIMEPIRIDE
     Dates: start: 20150325
  6. OMEPRAL [Concomitant]
     Active Substance: OMEPRAZOLE
  7. MEVALOTIN [Concomitant]
     Active Substance: PRAVASTATIN SODIUM
  8. MUCOSTA [Concomitant]
     Active Substance: REBAMIPIDE
  9. ONGLYZA [Suspect]
     Active Substance: SAXAGLIPTIN HYDROCHLORIDE
     Indication: TYPE 2 DIABETES MELLITUS
     Route: 048
     Dates: start: 20141216

REACTIONS (1)
  - Cellulitis [Recovered/Resolved]

NARRATIVE: CASE EVENT DATE: 20160621
